FAERS Safety Report 4330543-0 (Version None)
Quarter: 2004Q2

REPORT INFORMATION
  Report Type: 
  Country: None (occurrence: None)
  Receive Date: 20040401
  Receipt Date: 20040401
  Transmission Date: 20050107
  Serious: Yes (Hospitalization)
  Sender: FDA-Public Use
  Company Number: None

PATIENT
  Age: 54 Year
  Sex: Male
  Weight: 63.1 kg

DRUGS (13)
  1. PHENYTOIN [Suspect]
     Indication: CONVULSION
     Dosage: 400MG, 400MG QH, ORAL
     Route: 048
  2. ASPIRIN [Concomitant]
  3. GABAPENTIN [Concomitant]
  4. IBUPROFEN [Concomitant]
  5. LORATADINE [Concomitant]
  6. LATANOPROST [Concomitant]
  7. TIMOLOL MALEATE [Concomitant]
  8. SILDENAFIL CITRATE [Concomitant]
  9. FLUTICASONE PROP [Concomitant]
  10. VIT B/ VIT C 500MG/ FOLIC ACID 0.5MG [Concomitant]
  11. VITAMIN B COMPLEX/VITAMIN C CAP [Concomitant]
  12. SODIUM CHLORIDE INJ [Concomitant]
  13. CLONAZEPAM [Concomitant]

REACTIONS (1)
  - INTERNATIONAL NORMALISED RATIO INCREASED [None]
